FAERS Safety Report 24890915 (Version 1)
Quarter: 2025Q1

REPORT INFORMATION
  Report Type: Spontaneous
  Country: US (occurrence: None)
  Receive Date: 20250127
  Receipt Date: 20250127
  Transmission Date: 20250408
  Serious: Yes (Hospitalization, Disabling)
  Sender: FDA-CTU
  Company Number: None

PATIENT
  Age: 30 Year
  Sex: Male
  Weight: 77.4 kg

DRUGS (4)
  1. EMGALITY [Suspect]
     Active Substance: GALCANEZUMAB-GNLM
     Indication: Migraine
     Dates: start: 20241120, end: 20250114
  2. LEXAPRO [Concomitant]
     Active Substance: ESCITALOPRAM OXALATE
  3. PAMALOR [Concomitant]
  4. KIRKLAND MULTIVITAMIN [Concomitant]

REACTIONS (3)
  - Raynaud^s phenomenon [None]
  - Gangrene [None]
  - Amputation [None]

NARRATIVE: CASE EVENT DATE: 20250123
